FAERS Safety Report 25773389 (Version 1)
Quarter: 2025Q3

REPORT INFORMATION
  Report Type: Spontaneous
  Country: US (occurrence: US)
  Receive Date: 20250908
  Receipt Date: 20250908
  Transmission Date: 20251021
  Serious: Yes (Other)
  Sender: MYLAN
  Company Number: US-MYLANLABS-2025M1075758

PATIENT
  Age: 71 Year
  Sex: Female
  Weight: 72.57 kg

DRUGS (8)
  1. LEVOTHYROXINE SODIUM [Suspect]
     Active Substance: LEVOTHYROXINE SODIUM
     Indication: Hypothyroidism
  2. LEVOTHYROXINE SODIUM [Suspect]
     Active Substance: LEVOTHYROXINE SODIUM
     Route: 065
  3. LEVOTHYROXINE SODIUM [Suspect]
     Active Substance: LEVOTHYROXINE SODIUM
     Route: 065
  4. LEVOTHYROXINE SODIUM [Suspect]
     Active Substance: LEVOTHYROXINE SODIUM
  5. MIRTAZAPINE [Concomitant]
     Active Substance: MIRTAZAPINE
  6. MIRTAZAPINE [Concomitant]
     Active Substance: MIRTAZAPINE
     Route: 065
  7. MIRTAZAPINE [Concomitant]
     Active Substance: MIRTAZAPINE
     Route: 065
  8. MIRTAZAPINE [Concomitant]
     Active Substance: MIRTAZAPINE

REACTIONS (6)
  - Neuropathy peripheral [Unknown]
  - Depression [Unknown]
  - Paraesthesia [Unknown]
  - Fatigue [Unknown]
  - Recalled product administered [Recovered/Resolved]
  - Poor quality product administered [Recovered/Resolved]

NARRATIVE: CASE EVENT DATE: 20230801
